FAERS Safety Report 9969617 (Version 1)
Quarter: 2014Q1

REPORT INFORMATION
  Report Type: Spontaneous
  Country: US (occurrence: None)
  Receive Date: 20140304
  Receipt Date: 20140304
  Transmission Date: 20141002
  Serious: Yes (Hospitalization)
  Sender: FDA-Public Use
  Company Number: HYP201312-000084

PATIENT
  Age: 44 Year
  Sex: Male
  Weight: 90.72 kg

DRUGS (6)
  1. RAVICTI [Suspect]
     Indication: AMINO ACID METABOLISM DISORDER
     Route: 048
     Dates: start: 20131206, end: 20131230
  2. CITRULLINE [Concomitant]
  3. CENTRUM MULTIVITAMIN [Concomitant]
  4. LEXAPRO [Concomitant]
  5. XANAX [Concomitant]
  6. ABILIFY [Concomitant]

REACTIONS (15)
  - Restlessness [None]
  - Irritability [None]
  - Malaise [None]
  - Somnolence [None]
  - Headache [None]
  - Pain [None]
  - Asthenia [None]
  - Rash pruritic [None]
  - Back pain [None]
  - Swelling face [None]
  - Eye swelling [None]
  - Abnormal behaviour [None]
  - Drug ineffective [None]
  - Angioedema [None]
  - Palatal oedema [None]
